FAERS Safety Report 19962715 (Version 1)
Quarter: 2021Q4

REPORT INFORMATION
  Report Type: Spontaneous
  Country: DE (occurrence: DE)
  Receive Date: 20211018
  Receipt Date: 20211018
  Transmission Date: 20220303
  Serious: Yes (Hospitalization)
  Sender: FDA-Public Use
  Company Number: DE-002147023-NVSC2019DE091318

PATIENT
  Sex: Female

DRUGS (2)
  1. XOLAIR [Suspect]
     Active Substance: OMALIZUMAB
     Indication: Urticaria pressure
     Dosage: 300 MG (2X 150 MG)
     Route: 058
     Dates: start: 2019, end: 202107
  2. XOLAIR [Suspect]
     Active Substance: OMALIZUMAB
     Dosage: 300 MG, (2X 150 MG)
     Route: 058

REACTIONS (9)
  - Dysphonia [Recovering/Resolving]
  - Hyperthermia [Recovering/Resolving]
  - Arthralgia [Recovering/Resolving]
  - Mental disorder [Unknown]
  - Serum sickness-like reaction [Recovering/Resolving]
  - Joint swelling [Recovering/Resolving]
  - Injection site swelling [Recovering/Resolving]
  - Urticaria [Recovering/Resolving]
  - Product use in unapproved indication [Unknown]

NARRATIVE: CASE EVENT DATE: 20210701
